FAERS Safety Report 21453049 (Version 3)
Quarter: 2024Q3

REPORT INFORMATION
  Report Type: Report from Study
  Country: CA (occurrence: CA)
  Receive Date: 20221013
  Receipt Date: 20240820
  Transmission Date: 20241017
  Serious: Yes (Other)
  Sender: ROCHE
  Company Number: CA-002147023-NVSC2022CA228581

PATIENT
  Age: 72 Year
  Sex: Female

DRUGS (6)
  1. XOLAIR [Suspect]
     Active Substance: OMALIZUMAB
     Indication: Chronic spontaneous urticaria
     Dosage: 300 MG, EVERY 4 WEEKS (FIRST INJECTION)
     Route: 058
     Dates: start: 20220718
  2. XOLAIR [Suspect]
     Active Substance: OMALIZUMAB
     Dosage: 300 MG, EVERY 4 WEEKS (FIRST INJECTION)
     Route: 058
  3. CLARITIN [Concomitant]
     Active Substance: LORATADINE
     Indication: Product used for unknown indication
     Dosage: 6 DOSAGE FORM, QD
  4. CLARITIN [Concomitant]
     Active Substance: LORATADINE
     Dosage: 6 DOSAGE FORM, QD
     Route: 048
  5. HYDROCORTISONE [Concomitant]
     Active Substance: HYDROCORTISONE\HYDROCORTISONE ACETATE
     Indication: Product used for unknown indication
     Dosage: UNK, BID
  6. CETIRIZINE HYDROCHLORIDE [Concomitant]
     Active Substance: CETIRIZINE HYDROCHLORIDE
     Indication: Product used for unknown indication
     Dosage: UNK, BID

REACTIONS (6)
  - Arthritis [Unknown]
  - Arthralgia [Unknown]
  - Urticaria [Unknown]
  - Pruritus [Recovering/Resolving]
  - Musculoskeletal stiffness [Unknown]
  - Discomfort [Unknown]
